FAERS Safety Report 8942220 (Version 1)
Quarter: 2012Q4

REPORT INFORMATION
  Report Type: Spontaneous
  Country: US (occurrence: None)
  Receive Date: 20121129
  Receipt Date: 20121129
  Transmission Date: 20130627
  Serious: Yes (Other)
  Sender: FDA-Public Use
  Company Number: None

PATIENT
  Sex: Female
  Weight: 82.56 kg

DRUGS (1)
  1. CHLORHEXIDINE [Suspect]
     Indication: PREOPERATIVE CARE
     Dosage: wipes once top
     Route: 061
     Dates: start: 20121127, end: 20121127

REACTIONS (3)
  - Rash pruritic [None]
  - Blister [None]
  - Rash erythematous [None]
